FAERS Safety Report 9154945 (Version 5)
Quarter: 2013Q4

REPORT INFORMATION
  Report Type: Spontaneous
  Country: JP (occurrence: JP)
  Receive Date: 20130311
  Receipt Date: 20131106
  Transmission Date: 20140711
  Serious: Yes (Hospitalization, Other)
  Sender: FDA-Public Use
  Company Number: JP-VERTEX PHARMACEUTICALS INC.-2013-003287

PATIENT
  Age: 62 Year
  Sex: Female

DRUGS (14)
  1. TELAVIC [Suspect]
     Indication: CHRONIC HEPATITIS C
     Dosage: 2250 MG, QD
     Route: 048
     Dates: start: 20130201, end: 20130220
  2. PEGINTRON [Suspect]
     Indication: CHRONIC HEPATITIS C
     Dosage: 80 ?G/KG, QW
     Route: 058
     Dates: start: 20130201, end: 20130215
  3. PEGINTRON [Suspect]
     Dosage: 80 ?G/KG, QW
     Route: 058
     Dates: start: 20130308
  4. REBETOL [Suspect]
     Indication: CHRONIC HEPATITIS C
     Dosage: 600 MG, QD
     Route: 048
     Dates: start: 20130201, end: 20130206
  5. REBETOL [Suspect]
     Dosage: 400 MG, QD
     Route: 048
     Dates: start: 20130207, end: 20130214
  6. REBETOL [Suspect]
     Dosage: 200 MG, QD
     Route: 048
     Dates: start: 20130215, end: 20130220
  7. REBETOL [Suspect]
     Dosage: 200 MG, QD
     Route: 048
     Dates: start: 20130308
  8. MAGNESIUM OXIDE [Concomitant]
     Dosage: 3 G, QD
     Route: 048
  9. ZYLORIC [Concomitant]
     Dosage: 300 MG, QD
     Route: 048
  10. LAC-B [Concomitant]
     Dosage: 3 G, QD
     Route: 048
  11. PURSENNID [Concomitant]
     Dosage: 24 MG/QD, PRN
     Route: 048
  12. VICTOZA [Concomitant]
     Dosage: 0.6 MG, QD
     Route: 058
  13. MS REISHIPPU [Concomitant]
     Dosage: 40 G, PRN
     Route: 061
     Dates: start: 20130217, end: 20130218
  14. OLMETEC [Concomitant]
     Dosage: 10 G, QD
     Route: 048

REACTIONS (8)
  - Malaise [Recovered/Resolved]
  - Decreased appetite [Recovered/Resolved]
  - Renal impairment [Recovered/Resolved]
  - Loss of consciousness [Recovered/Resolved]
  - Dizziness [Recovered/Resolved]
  - Pyrexia [Not Recovered/Not Resolved]
  - Rash [Recovered/Resolved]
  - Anaemia [Recovered/Resolved]
